FAERS Safety Report 5083938-4 (Version None)
Quarter: 2006Q3

REPORT INFORMATION
  Report Type: 
  Country: None (occurrence: None)
  Receive Date: 20060727
  Receipt Date: 20060407
  Transmission Date: 20061208
  Serious: Yes (Other)
  Sender: FDA-Public Use
  Company Number: 2006050056

PATIENT
  Age: 77 Year
  Sex: Female
  Weight: 78.9259 kg

DRUGS (5)
  1. LYRICA [Suspect]
     Indication: NERVE COMPRESSION
     Dosage: 150 MG (50 MG,3 IN 1 D)
     Dates: start: 20060101
  2. HYDROCHLOROTHIAZIDE [Concomitant]
  3. LISINOPRIL [Concomitant]
  4. ZOCOR [Concomitant]
  5. ACTOS [Concomitant]

REACTIONS (1)
  - NERVE COMPRESSION [None]
